FAERS Safety Report 15959494 (Version 1)
Quarter: 2019Q1

REPORT INFORMATION
  Report Type: Spontaneous
  Country: DE (occurrence: DE)
  Receive Date: 20190214
  Receipt Date: 20190214
  Transmission Date: 20190417
  Serious: Yes (Hospitalization)
  Sender: FDA-Public Use
  Company Number: DE-ACCORD-107052

PATIENT
  Age: 70 Year
  Sex: Male
  Weight: 92 kg

DRUGS (2)
  1. EZETROL [Suspect]
     Active Substance: EZETIMIBE
     Indication: HYPERLIPIDAEMIA
     Route: 048
  2. SIMVASTATIN. [Suspect]
     Active Substance: SIMVASTATIN
     Indication: HYPERLIPIDAEMIA
     Route: 048

REACTIONS (4)
  - Hepatic enzyme increased [Unknown]
  - Psoriasis [Unknown]
  - Myalgia [Unknown]
  - Eye irritation [Unknown]
